FAERS Safety Report 22866830 (Version 3)
Quarter: 2023Q4

REPORT INFORMATION
  Report Type: Report from Study
  Country: JP (occurrence: JP)
  Receive Date: 20230825
  Receipt Date: 20231009
  Transmission Date: 20240110
  Serious: Yes (Hospitalization)
  Sender: FDA-Public Use
  Company Number: JP-ARGENX-2023-ARGX-JP002777

PATIENT
  Age: 45 Year
  Sex: Female
  Weight: 65.3 kg

DRUGS (8)
  1. VYVGART [Suspect]
     Active Substance: EFGARTIGIMOD ALFA-FCAB
     Indication: Myasthenia gravis
     Dosage: 640 MG
     Route: 041
     Dates: start: 20230112, end: 20230202
  2. VYVGART [Suspect]
     Active Substance: EFGARTIGIMOD ALFA-FCAB
     Dosage: 640 MG
     Route: 041
     Dates: start: 20230406, end: 20230427
  3. VYVGART [Suspect]
     Active Substance: EFGARTIGIMOD ALFA-FCAB
     Dosage: 640 MG
     Route: 041
     Dates: start: 20230629, end: 20230720
  4. PROGRAF [Concomitant]
     Active Substance: TACROLIMUS
     Indication: Myasthenia gravis
     Dosage: 3 MG
     Route: 048
     Dates: start: 20221216
  5. PREDNISOLONE [Concomitant]
     Active Substance: PREDNISOLONE
     Indication: Myasthenia gravis
     Dosage: 4 MG
     Route: 048
     Dates: start: 20230216
  6. MIROGABALIN BESYLATE [Concomitant]
     Active Substance: MIROGABALIN BESYLATE
     Indication: Myasthenia gravis
     Dosage: 10 MG
     Route: 048
     Dates: start: 20221209
  7. PREDONINE [Concomitant]
     Active Substance: PREDNISOLONE
     Indication: Myasthenia gravis
     Dosage: 5 MG
     Route: 048
     Dates: start: 20221205, end: 20230215
  8. LANSOPRAZOLE [Concomitant]
     Active Substance: LANSOPRAZOLE
     Indication: Product used for unknown indication
     Dosage: 15 MG
     Route: 048
     Dates: start: 20221205

REACTIONS (1)
  - Symptom recurrence [Recovering/Resolving]

NARRATIVE: CASE EVENT DATE: 20230510
